FAERS Safety Report 9219584 (Version 1)
Quarter: 2013Q2

REPORT INFORMATION
  Report Type: Spontaneous
  Country: US (occurrence: None)
  Receive Date: 20130405
  Receipt Date: 20130405
  Transmission Date: 20140414
  Serious: Yes (Hospitalization, Other)
  Sender: FDA-Public Use
  Company Number: A-13-082

PATIENT
  Sex: Female

DRUGS (4)
  1. ALBUTEROL [Suspect]
     Indication: ASTHMA
     Dosage: 5 TIMES 054
  2. FLUTICASONE/SALMETEROL [Concomitant]
  3. MONTELUKAST [Concomitant]
  4. PREDNISONE [Concomitant]

REACTIONS (3)
  - Lactic acidosis [None]
  - Wheezing [None]
  - Tachypnoea [None]
